FAERS Safety Report 4587229-7 (Version None)
Quarter: 2005Q1

REPORT INFORMATION
  Report Type: 
  Country: None (occurrence: None)
  Receive Date: 20050215
  Receipt Date: 20050203
  Transmission Date: 20050727
  Serious: Yes (Other)
  Sender: FDA-Public Use
  Company Number: 2001056069US

PATIENT
  Age: 74 Year
  Sex: Female

DRUGS (11)
  1. ROGAINE [Suspect]
     Indication: FEMALE PATTERN BALDNESS
     Dosage: 1 ML BID, TOPICAL
     Route: 061
     Dates: start: 19800101
  2. OXYCODONE HCL [Concomitant]
  3. VICODIN [Concomitant]
  4. LIDOCAINE [Concomitant]
  5. PREDNISONE [Concomitant]
  6. ESTROGEN NOS (ESTROGEN NOS) [Concomitant]
  7. DYAZIDE [Concomitant]
  8. CENTRUM SILVER (ASCORBIC ACID, CALCIUM, MINERALS NOS, RETINOL, TOCOPHE [Concomitant]
  9. HERBAL PREPARATION (HERBAL PREPARATION) [Concomitant]
  10. CALCIUM (CALCIUM) [Concomitant]
  11. ERGOCALCIFEROL (ERGOCALCIFEROL) [Concomitant]

REACTIONS (4)
  - ALOPECIA [None]
  - CEREBROVASCULAR ACCIDENT [None]
  - HAIR TEXTURE ABNORMAL [None]
  - PRURITUS [None]
